FAERS Safety Report 8669736 (Version 2)
Quarter: 2013Q2

REPORT INFORMATION
  Report Type: Report from Study
  Country: ES (occurrence: ES)
  Receive Date: 20120718
  Receipt Date: 20130617
  Transmission Date: 20140414
  Serious: Yes (Death)
  Sender: FDA-Public Use
  Company Number: ES-SANOFI-AVENTIS-2012SA049899

PATIENT
  Age: 55 Year
  Sex: Male
  Weight: 60 kg

DRUGS (11)
  1. DOCETAXEL [Suspect]
     Indication: SQUAMOUS CELL CARCINOMA OF HEAD AND NECK
     Dosage: UNIT DOSE: 75 MG/M2
     Route: 042
     Dates: start: 20120516, end: 20120516
  2. CISPLATIN [Suspect]
     Indication: SQUAMOUS CELL CARCINOMA OF HEAD AND NECK
     Dosage: UNIT DOSE: 75 MG/M2
     Route: 042
     Dates: start: 20120516, end: 20120516
  3. FLUOROURACIL [Suspect]
     Indication: SQUAMOUS CELL CARCINOMA OF HEAD AND NECK
     Dosage: UNIT DOSE: 750 MG/M2
     Route: 042
     Dates: start: 20120516, end: 20120520
  4. ONDANSETRON [Concomitant]
     Route: 042
  5. DEXAMETHASONE [Concomitant]
     Route: 042
  6. PANTOPRAZOLE [Concomitant]
     Route: 042
  7. I.V. SOLUTIONS [Concomitant]
     Dosage: DOSE: 3.50 %
     Route: 042
  8. FUROSEMIDE [Concomitant]
     Route: 042
  9. LACTULOSE [Concomitant]
     Route: 048
  10. DEXKETOPROFEN [Concomitant]
  11. METAMIZOLE [Concomitant]

REACTIONS (1)
  - Cardio-respiratory arrest [Fatal]
